FAERS Safety Report 12938376 (Version 2)
Quarter: 2017Q2

REPORT INFORMATION
  Report Type: Spontaneous
  Country: US (occurrence: US)
  Receive Date: 20161114
  Receipt Date: 20170510
  Transmission Date: 20170830
  Serious: No
  Sender: FDA-Public Use
  Company Number: US-CELGENEUS-USA-2016113068

PATIENT
  Sex: Male
  Weight: 70.37 kg

DRUGS (1)
  1. OTEZLA [Suspect]
     Active Substance: APREMILAST
     Indication: PSORIASIS
     Dosage: 60 MILLIGRAM
     Route: 048
     Dates: start: 20160614, end: 20161031

REACTIONS (1)
  - Therapy non-responder [Recovering/Resolving]

NARRATIVE: CASE EVENT DATE: 2016
